FAERS Safety Report 8388007-3 (Version None)
Quarter: 2012Q2

REPORT INFORMATION
  Report Type: 
  Country: None (occurrence: None)
  Receive Date: 20120525
  Receipt Date: 20120511
  Transmission Date: 20120825
  Serious: Yes (Hospitalization, Other)
  Sender: FDA-Public Use
  Company Number: US-WATSON-2012-08446

PATIENT
  Age: 46 Year
  Sex: Female

DRUGS (1)
  1. GEMCITABINE [Suspect]
     Indication: PANCREATIC CARCINOMA
     Dosage: 6 CYCLES (TOTAL OF 21G)
     Route: 065

REACTIONS (3)
  - RENAL FAILURE ACUTE [None]
  - HAEMOLYTIC URAEMIC SYNDROME [None]
  - LIVEDO RETICULARIS [None]
